FAERS Safety Report 8217215-7 (Version None)
Quarter: 2012Q1

REPORT INFORMATION
  Report Type: 
  Country: None (occurrence: None)
  Receive Date: 20120319
  Receipt Date: 20120313
  Transmission Date: 20120608
  Serious: No
  Sender: FDA-Public Use
  Company Number: US-PFIZER INC-2012067547

PATIENT
  Sex: Male

DRUGS (3)
  1. CARDURA [Suspect]
     Dosage: UNK
  2. DETROL LA [Suspect]
     Dosage: UNK
  3. CALAN [Suspect]
     Dosage: UNK

REACTIONS (2)
  - CONDITION AGGRAVATED [None]
  - GAIT DISTURBANCE [None]
